FAERS Safety Report 5117195-7 (Version None)
Quarter: 2006Q3

REPORT INFORMATION
  Report Type: 
  Country: None (occurrence: None)
  Receive Date: 20060929
  Receipt Date: 20060920
  Transmission Date: 20061208
  Serious: Yes (Other)
  Sender: FDA-Public Use
  Company Number: PHEH2006US12050

PATIENT

DRUGS (1)
  1. MIACALCIN [Suspect]
     Dates: end: 20000101

REACTIONS (2)
  - BODY HEIGHT DECREASED [None]
  - SPINAL FRACTURE [None]
